FAERS Safety Report 10281172 (Version 1)
Quarter: 2014Q3

REPORT INFORMATION
  Report Type: Spontaneous
  Country: US (occurrence: None)
  Receive Date: 20140702
  Receipt Date: 20140702
  Transmission Date: 20150326
  Serious: Yes (Disabling)
  Sender: FDA-Public Use
  Company Number: None

PATIENT
  Age: 58 Year
  Sex: Male
  Weight: 104.33 kg

DRUGS (6)
  1. ATIVAN [Concomitant]
     Active Substance: LORAZEPAM
  2. ZAPRAZIDONE [Concomitant]
  3. VALPROATE [Suspect]
     Active Substance: VALPROATE SODIUM
     Indication: EPILEPSY
     Route: 042
     Dates: start: 20131009, end: 20131011
  4. PRILOSEC [Concomitant]
     Active Substance: OMEPRAZOLE MAGNESIUM
  5. DELTASONE [Concomitant]
     Active Substance: PREDNISONE
  6. ATROVENT [Concomitant]
     Active Substance: IPRATROPIUM BROMIDE

REACTIONS (7)
  - Tinnitus [None]
  - Pharyngeal hypoaesthesia [None]
  - Haemorrhoids [None]
  - Rectal haemorrhage [None]
  - Vision blurred [None]
  - Malaise [None]
  - Hypoaesthesia [None]

NARRATIVE: CASE EVENT DATE: 20131009
